FAERS Safety Report 9157753 (Version 2)
Quarter: 2013Q1

REPORT INFORMATION
  Report Type: Spontaneous
  Country: FR (occurrence: FR)
  Receive Date: 20130312
  Receipt Date: 20130320
  Transmission Date: 20140127
  Serious: Yes (Hospitalization)
  Sender: FDA-Public Use
  Company Number: FR-PFIZER INC-2013081997

PATIENT
  Age: 79 Year
  Sex: Male

DRUGS (11)
  1. DILTIAZEM HCL [Suspect]
     Dosage: UNK
     Route: 048
     Dates: start: 2005, end: 201302
  2. ALPRAZOLAM [Suspect]
     Dosage: 0.25 MG, DAILY
     Route: 048
     Dates: start: 201209
  3. ATORVASTATIN CALCIUM [Suspect]
     Indication: PRODUCT USED FOR UNKNOWN INDICATION
     Dosage: 10 MG, DAILY
     Route: 048
     Dates: start: 20090626
  4. ATORVASTATIN CALCIUM [Suspect]
     Dosage: UNK
     Route: 065
     Dates: start: 201210
  5. PAROXETINE [Suspect]
     Dosage: 20 MG, DAILY
     Route: 048
     Dates: start: 20130103
  6. INDAPAMIDE [Suspect]
     Indication: PRODUCT USED FOR UNKNOWN INDICATION
     Dosage: UNK
     Route: 065
     Dates: start: 20050610
  7. INDAPAMIDE [Suspect]
     Dosage: 1.5 MG, DAILY
     Route: 048
     Dates: start: 201210, end: 201302
  8. ALLOPURINOL [Suspect]
     Indication: GOUT
     Dosage: 200 MG, DAILY
     Route: 048
  9. ALLOPURINOL [Suspect]
     Dosage: UNK
     Route: 065
     Dates: start: 20100203
  10. ALLOPURINOL [Suspect]
     Dosage: UNK
     Route: 065
     Dates: start: 201209
  11. SINTROM [Suspect]
     Indication: PRODUCT USED FOR UNKNOWN INDICATION
     Dosage: UNK
     Route: 048

REACTIONS (9)
  - Haemolytic anaemia [Not Recovered/Not Resolved]
  - Asthenia [Unknown]
  - Pallor [Unknown]
  - Nausea [Unknown]
  - Abdominal pain upper [Unknown]
  - Splenomegaly [Unknown]
  - Lymphadenopathy [Unknown]
  - Chromaturia [Unknown]
  - Myelodysplastic syndrome [None]
